FAERS Safety Report 8511609-8 (Version None)
Quarter: 2012Q3

REPORT INFORMATION
  Report Type: 
  Country: None (occurrence: None)
  Receive Date: 20120716
  Receipt Date: 20120710
  Transmission Date: 20120928
  Serious: Yes (Hospitalization)
  Sender: FDA-Public Use
  Company Number: PHHY2012IL059956

PATIENT
  Sex: Female

DRUGS (2)
  1. SANDOSTATIN LAR [Suspect]
     Dosage: 30 MG, EVERY 28 DAYS
     Dates: start: 20120610
  2. SANDOSTATIN LAR [Suspect]
     Indication: CARCINOID TUMOUR
     Dosage: 30 MG, EVERY 28 DAYS
     Dates: start: 20120214

REACTIONS (2)
  - PLEURAL EFFUSION [None]
  - ABDOMINAL PAIN [None]
